FAERS Safety Report 5272532-8 (Version None)
Quarter: 2007Q1

REPORT INFORMATION
  Report Type: 
  Country: None (occurrence: None)
  Receive Date: 20070322
  Receipt Date: 20061011
  Transmission Date: 20070707
  Serious: No
  Sender: FDA-Public Use
  Company Number: US-BRISTOL-MYERS SQUIBB COMPANY-13538830

PATIENT

DRUGS (1)
  1. KENALOG [Suspect]
     Route: 008

REACTIONS (1)
  - NEURITIS [None]
